FAERS Safety Report 19442906 (Version 1)
Quarter: 2021Q2

REPORT INFORMATION
  Report Type: Spontaneous
  Country: FR (occurrence: FR)
  Receive Date: 20210621
  Receipt Date: 20210621
  Transmission Date: 20210717
  Serious: Yes (Hospitalization)
  Sender: FDA-Public Use
  Company Number: FR-ACCORD-228695

PATIENT
  Age: 44 Year
  Sex: Female
  Weight: 76 kg

DRUGS (5)
  1. HUMALOG [Concomitant]
     Active Substance: INSULIN LISPRO
  2. MABTHERA [Concomitant]
     Active Substance: RITUXIMAB
  3. PARACETAMOL [Concomitant]
     Active Substance: ACETAMINOPHEN
  4. XARELTO [Concomitant]
     Active Substance: RIVAROXABAN
  5. METHOTREXATE. [Suspect]
     Active Substance: METHOTREXATE
     Indication: RHEUMATOID ARTHRITIS
     Route: 058
     Dates: start: 201408, end: 202103

REACTIONS (1)
  - Pleural effusion [Recovered/Resolved]

NARRATIVE: CASE EVENT DATE: 20210326
